FAERS Safety Report 4507371-6 (Version None)
Quarter: 2004Q4

REPORT INFORMATION
  Report Type: 
  Country: None (occurrence: None)
  Receive Date: 20041119
  Receipt Date: 20041108
  Transmission Date: 20050328
  Serious: Yes (Other)
  Sender: FDA-Public Use
  Company Number: 2004089257

PATIENT
  Sex: Male

DRUGS (1)
  1. DESITIN CREAMY DIAPER RASH (ZINC OXIDE) [Suspect]
     Indication: RASH
     Dosage: TOPICAL
     Route: 061

REACTIONS (2)
  - LEUKAEMIA [None]
  - SKIN NECROSIS [None]
